FAERS Safety Report 18995634 (Version 1)
Quarter: 2021Q1

REPORT INFORMATION
  Report Type: Spontaneous
  Country: US (occurrence: US)
  Receive Date: 20210311
  Receipt Date: 20210311
  Transmission Date: 20210420
  Serious: Yes (Other)
  Sender: FDA-Public Use
  Company Number: US-ALLERGAN-2033994US

PATIENT
  Age: 29 Year
  Sex: Male

DRUGS (4)
  1. VIIBRYD [Suspect]
     Active Substance: VILAZODONE HYDROCHLORIDE
     Indication: ANXIETY
     Dosage: 20 MG, QAM
     Route: 048
     Dates: end: 20181001
  2. VIIBRYD [Suspect]
     Active Substance: VILAZODONE HYDROCHLORIDE
     Dosage: 10 MG FOR 7 DAYS
     Route: 048
     Dates: start: 201807
  3. PRAZOSIN. [Suspect]
     Active Substance: PRAZOSIN
     Dosage: 1 MG, QHS
     Dates: start: 20181008
  4. PRAZOSIN. [Suspect]
     Active Substance: PRAZOSIN
     Indication: PRODUCT USED FOR UNKNOWN INDICATION
     Dosage: 2 MG, QHS

REACTIONS (4)
  - Suicidal ideation [Unknown]
  - Off label use [Unknown]
  - Abnormal dreams [Not Recovered/Not Resolved]
  - Irritability [Unknown]

NARRATIVE: CASE EVENT DATE: 201807
